FAERS Safety Report 19447694 (Version 1)
Quarter: 2021Q2

REPORT INFORMATION
  Report Type: Spontaneous
  Country: US (occurrence: US)
  Receive Date: 20210622
  Receipt Date: 20210622
  Transmission Date: 20210717
  Serious: Yes (Hospitalization)
  Sender: FDA-Public Use
  Company Number: None

PATIENT
  Age: 38 Year
  Sex: Female
  Weight: 60.75 kg

DRUGS (2)
  1. OMEPRAZOLE. [Suspect]
     Active Substance: OMEPRAZOLE
     Indication: GASTROOESOPHAGEAL REFLUX DISEASE
     Dates: start: 20210324, end: 20210527
  2. DAILY MULTIVITAMINS [Concomitant]

REACTIONS (6)
  - Palpitations [None]
  - Insomnia [None]
  - Paraesthesia [None]
  - Anxiety [None]
  - Hyperacusis [None]
  - Nervousness [None]

NARRATIVE: CASE EVENT DATE: 20210527
